FAERS Safety Report 10692505 (Version 4)
Quarter: 2015Q1

REPORT INFORMATION
  Report Type: Report from Study
  Country: IL (occurrence: IL)
  Receive Date: 20150106
  Receipt Date: 20150309
  Transmission Date: 20150720
  Serious: Yes (Death, Hospitalization)
  Sender: FDA-Public Use
  Company Number: IL-SA-2015SA000573

PATIENT
  Age: 76 Year
  Sex: Male

DRUGS (2)
  1. CEREZYME [Suspect]
     Active Substance: IMIGLUCERASE
     Indication: GAUCHER^S DISEASE
     Dosage: DOSE: 2400
     Route: 042
     Dates: start: 201501
  2. CEREZYME [Suspect]
     Active Substance: IMIGLUCERASE
     Indication: GAUCHER^S DISEASE
     Dosage: DOSE: 2400
     Route: 042
     Dates: end: 20141221

REACTIONS (6)
  - Cardiac disorder [Unknown]
  - Nasopharyngitis [Unknown]
  - Cardiac arrest [Fatal]
  - Feeling abnormal [Unknown]
  - Asthenia [Unknown]
  - Loss of consciousness [Recovered/Resolved with Sequelae]

NARRATIVE: CASE EVENT DATE: 20141226
